FAERS Safety Report 6903455-3 (Version None)
Quarter: 2010Q3

REPORT INFORMATION
  Report Type: 
  Country: None (occurrence: None)
  Receive Date: 20100803
  Receipt Date: 20081002
  Transmission Date: 20110219
  Serious: No
  Sender: FDA-Public Use
  Company Number: US-PFIZER INC-2008083690

PATIENT
  Sex: Female
  Weight: 72.57 kg

DRUGS (8)
  1. LYRICA [Suspect]
     Indication: PAIN
     Dates: start: 20080930
  2. LYRICA [Suspect]
     Indication: FIBROMYALGIA
  3. FOSAMAX [Concomitant]
  4. AVAPRO [Concomitant]
  5. LIPITOR [Concomitant]
  6. PREVACID [Concomitant]
  7. NAPROXEN [Concomitant]
  8. AMBIEN [Concomitant]

REACTIONS (2)
  - DISTURBANCE IN ATTENTION [None]
  - PAIN [None]
